FAERS Safety Report 6213326-6 (Version None)
Quarter: 2009Q2

REPORT INFORMATION
  Report Type: 
  Country: None (occurrence: None)
  Receive Date: 20090603
  Receipt Date: 20090601
  Transmission Date: 20091009
  Serious: Yes (Hospitalization)
  Sender: FDA-Public Use
  Company Number: US-BRISTOL-MYERS SQUIBB COMPANY-14644132

PATIENT
  Age: 55 Year
  Sex: Male
  Weight: 87 kg

DRUGS (3)
  1. COUMADIN [Suspect]
     Dates: end: 20090101
  2. ALEVE [Suspect]
  3. BORTEZOMIB [Concomitant]
     Indication: MULTIPLE MYELOMA
     Dates: start: 20090313

REACTIONS (8)
  - ACTIVATED PARTIAL THROMBOPLASTIN TIME PROLONGED [None]
  - ANAEMIA [None]
  - ENTEROBACTER BACTERAEMIA [None]
  - EPISTAXIS [None]
  - INTERNATIONAL NORMALISED RATIO INCREASED [None]
  - OEDEMA [None]
  - PROTHROMBIN TIME PROLONGED [None]
  - THROMBOSIS [None]
